APPROVED DRUG PRODUCT: FOLIC ACID
Active Ingredient: FOLIC ACID
Strength: 1MG
Dosage Form/Route: TABLET;ORAL
Application: A089177 | Product #001
Applicant: BARR LABORATORIES INC
Approved: Jan 8, 1986 | RLD: No | RS: No | Type: DISCN